FAERS Safety Report 14742291 (Version 1)
Quarter: 2018Q2

REPORT INFORMATION
  Report Type: Spontaneous
  Country: BR (occurrence: BR)
  Receive Date: 20180410
  Receipt Date: 20180410
  Transmission Date: 20180711
  Serious: Yes (Other)
  Sender: FDA-Public Use
  Company Number: BR-PFIZER INC-2018142886

PATIENT
  Age: 94 Year

DRUGS (1)
  1. TIGECYCLINE. [Suspect]
     Active Substance: TIGECYCLINE
     Dosage: UNK

REACTIONS (4)
  - Pneumonia pseudomonal [Unknown]
  - Pseudomonas infection [Unknown]
  - Abdominal infection [Unknown]
  - Drug-induced liver injury [Unknown]
